FAERS Safety Report 4915419-X (Version None)
Quarter: 2006Q1

REPORT INFORMATION
  Report Type: 
  Country: None (occurrence: None)
  Receive Date: 20060217
  Receipt Date: 20051003
  Transmission Date: 20060701
  Serious: Yes (Death, Hospitalization, Disabling)
  Sender: FDA-Public Use
  Company Number: US-MERCK-0510USA02571

PATIENT
  Age: 55 Year
  Sex: Female
  Weight: 68 kg

DRUGS (10)
  1. VIOXX [Suspect]
     Indication: ARTHRITIS
     Route: 048
  2. TYLENOL [Concomitant]
     Route: 048
  3. ASPIRIN [Concomitant]
     Route: 048
  4. DILANTIN KAPSEAL [Concomitant]
     Route: 048
  5. PROPULSID [Concomitant]
     Route: 048
  6. PROZAC [Concomitant]
     Route: 048
  7. DILTIAZEM HCL [Concomitant]
     Route: 048
  8. INSULIN [Concomitant]
     Route: 065
  9. NEURONTIN [Concomitant]
     Route: 048
  10. CELEBREX [Concomitant]
     Route: 048

REACTIONS (42)
  - ANAESTHETIC COMPLICATION PULMONARY [None]
  - ANOXIC ENCEPHALOPATHY [None]
  - BLOOD ALKALINE PHOSPHATASE INCREASED [None]
  - BLOOD CALCIUM DECREASED [None]
  - BLOOD CHOLESTEROL INCREASED [None]
  - BLOOD GLUCOSE INCREASED [None]
  - BLOOD PRESSURE DECREASED [None]
  - BRAIN STEM INFARCTION [None]
  - BUNDLE BRANCH BLOCK RIGHT [None]
  - CARDIO-RESPIRATORY ARREST [None]
  - CATHETER BACTERAEMIA [None]
  - CEREBRAL ARTERY OCCLUSION [None]
  - CHEST PAIN [None]
  - COMA [None]
  - DEATH [None]
  - DEPRESSION [None]
  - DIZZINESS [None]
  - DYSPHAGIA [None]
  - ENCEPHALOPATHY [None]
  - ENDOCARDITIS [None]
  - FALL [None]
  - FLUID OVERLOAD [None]
  - HYPERGLYCAEMIA [None]
  - HYPERTENSION [None]
  - HYPOAESTHESIA [None]
  - HYPOXIA [None]
  - INCREASED BRONCHIAL SECRETION [None]
  - ISCHAEMIC STROKE [None]
  - KLEBSIELLA SEPSIS [None]
  - LUNG INFILTRATION [None]
  - NORMOCHROMIC NORMOCYTIC ANAEMIA [None]
  - PNEUMONIA ASPIRATION [None]
  - RED BLOOD CELL COUNT DECREASED [None]
  - RESPIRATORY ARREST [None]
  - RESPIRATORY DEPRESSION [None]
  - RESPIRATORY DISTRESS [None]
  - SHOULDER PAIN [None]
  - SINUS TACHYCARDIA [None]
  - STAPHYLOCOCCAL SEPSIS [None]
  - URINARY TRACT INFECTION [None]
  - UROSEPSIS [None]
  - VOMITING [None]
